FAERS Safety Report 8813922 (Version 1)
Quarter: 2012Q4

REPORT INFORMATION
  Report Type: 
  Country: US (occurrence: US)
  Receive Date: 20120928
  Receipt Date: 20120928
  Transmission Date: 20130627
  Serious: Yes (Death)
  Sender: FDA-Public Use
  Company Number: US-ROCHE-1129536

PATIENT
  Sex: Female

DRUGS (7)
  1. HERCEPTIN [Suspect]
     Indication: OVARIAN CANCER
     Route: 065
     Dates: start: 20040512
  2. HERCEPTIN [Suspect]
     Route: 065
     Dates: start: 20040519
  3. HERCEPTIN [Suspect]
     Route: 065
     Dates: start: 20040526
  4. HERCEPTIN [Suspect]
     Route: 065
     Dates: start: 20040603
  5. HERCEPTIN [Suspect]
     Route: 065
     Dates: start: 20040620
  6. HERCEPTIN [Suspect]
     Route: 065
     Dates: start: 20040707
  7. HERCEPTIN [Suspect]
     Route: 065
     Dates: start: 20040714

REACTIONS (1)
  - Death [Fatal]
